FAERS Safety Report 7817845-8 (Version None)
Quarter: 2011Q4

REPORT INFORMATION
  Report Type: 
  Country: None (occurrence: None)
  Receive Date: 20111017
  Receipt Date: 20111005
  Transmission Date: 20120403
  Serious: Yes (Other)
  Sender: FDA-Public Use
  Company Number: JP-PFIZER INC-2011246861

PATIENT
  Age: 72 Year
  Sex: Male

DRUGS (2)
  1. CELECOXIB [Suspect]
     Indication: OSTEOARTHRITIS
     Dosage: 100 MG, 2X/DAY
     Route: 048
     Dates: start: 20110805, end: 20110806
  2. CELECOXIB [Suspect]
     Dosage: 50 MG, 2X/DAY
     Route: 048
     Dates: start: 20110807, end: 20110812

REACTIONS (2)
  - TRACHEAL STENOSIS [None]
  - RASH [None]
